FAERS Safety Report 6384379-X (Version None)
Quarter: 2009Q4

REPORT INFORMATION
  Report Type: 
  Country: None (occurrence: None)
  Receive Date: 20091001
  Receipt Date: 20090923
  Transmission Date: 20100525
  Serious: Yes (Hospitalization)
  Sender: FDA-Public Use
  Company Number: CA-JNJFOC-20090907377

PATIENT
  Sex: Male
  Weight: 102 kg

DRUGS (4)
  1. REMICADE [Suspect]
     Dosage: TOTAL OF 5 INFUSIONS
     Route: 042
     Dates: start: 20080101, end: 20090923
  2. REMICADE [Suspect]
     Route: 042
     Dates: start: 20080101, end: 20090923
  3. REMICADE [Suspect]
     Indication: CROHN'S DISEASE
     Route: 042
     Dates: start: 20080101, end: 20090923
  4. SOLU-CORTEF [Concomitant]
     Indication: PREMEDICATION

REACTIONS (2)
  - ABDOMINAL PAIN [None]
  - DYSSTASIA [None]
